FAERS Safety Report 6100762-1 (Version None)
Quarter: 2009Q1

REPORT INFORMATION
  Report Type: 
  Country: None (occurrence: None)
  Receive Date: 20090303
  Receipt Date: 20090225
  Transmission Date: 20090719
  Serious: Yes (Other)
  Sender: FDA-Public Use
  Company Number: TW-ROXANE LABORATORIES, INC.-2009-RO-00191RO

PATIENT
  Age: 71 Year
  Sex: Female

DRUGS (3)
  1. CYCLOPHOSPHAMIDE [Suspect]
     Indication: BREAST CANCER STAGE I
  2. EPIRUBICIN [Suspect]
     Indication: BREAST CANCER STAGE II
  3. FLUOROURACIL [Suspect]
     Indication: BREAST CANCER STAGE II

REACTIONS (1)
  - NAIL PIGMENTATION [None]
